FAERS Safety Report 19845511 (Version 1)
Quarter: 2021Q3

REPORT INFORMATION
  Report Type: Spontaneous
  Country: US (occurrence: US)
  Receive Date: 20210917
  Receipt Date: 20210917
  Transmission Date: 20211014
  Serious: Yes (Other)
  Sender: FDA-Public Use
  Company Number: None

PATIENT
  Age: 30 Year
  Sex: Female
  Weight: 80.55 kg

DRUGS (9)
  1. ATORVASTATIN [Concomitant]
     Active Substance: ATORVASTATIN
  2. ARMODAFINIL 250 MG TABLET [Concomitant]
     Active Substance: ARMODAFINIL
  3. GLIMEPIRIDE. [Concomitant]
     Active Substance: GLIMEPIRIDE
  4. BAMLANIVIMAB. [Suspect]
     Active Substance: BAMLANIVIMAB
     Indication: COVID-19
     Route: 058
     Dates: start: 20210910, end: 20210910
  5. SUMATRIPTAN. [Concomitant]
     Active Substance: SUMATRIPTAN
  6. BUPROPION XL [Concomitant]
     Active Substance: BUPROPION
  7. DEXTROAMPHET SACCHARAT, AMPHET ASPARTATE, DEXTROAMPHET SULFATE AND AMPHET SULFAT [Concomitant]
     Active Substance: AMPHETAMINE ASPARTATE\AMPHETAMINE SULFATE\DEXTROAMPHETAMINE SACCHARATE\DEXTROAMPHETAMINE SULFATE
  8. ALBUTEROL HFA [Concomitant]
     Active Substance: ALBUTEROL SULFATE
  9. AMITRIPTYLINE [Concomitant]
     Active Substance: AMITRIPTYLINE

REACTIONS (5)
  - Pyrexia [None]
  - Oropharyngeal pain [None]
  - Dyspnoea [None]
  - Ear pain [None]
  - Cough [None]

NARRATIVE: CASE EVENT DATE: 20210910
